FAERS Safety Report 20501814 (Version 1)
Quarter: 2022Q1

REPORT INFORMATION
  Report Type: Spontaneous
  Country: US (occurrence: US)
  Receive Date: 20220222
  Receipt Date: 20220222
  Transmission Date: 20220423
  Serious: Yes (Hospitalization)
  Sender: FDA-Public Use
  Company Number: US-MYLANLABS-2022M1014551

PATIENT
  Age: 61 Year
  Sex: Male

DRUGS (9)
  1. DEXAMETHASONE [Suspect]
     Active Substance: DEXAMETHASONE
     Indication: COVID-19 pneumonia
     Dosage: UNK
     Route: 065
  2. DAPTOMYCIN [Suspect]
     Active Substance: DAPTOMYCIN
     Indication: Pneumonia staphylococcal
     Dosage: UNK
     Route: 065
  3. DAPTOMYCIN [Suspect]
     Active Substance: DAPTOMYCIN
     Indication: Staphylococcal bacteraemia
  4. VANCOMYCIN [Suspect]
     Active Substance: VANCOMYCIN
     Indication: Pneumonia staphylococcal
     Dosage: UNK
     Route: 065
  5. VANCOMYCIN [Suspect]
     Active Substance: VANCOMYCIN
     Indication: Staphylococcal bacteraemia
  6. TELAVANCIN [Suspect]
     Active Substance: TELAVANCIN
     Indication: Pneumonia staphylococcal
     Dosage: UNK
     Route: 065
  7. TELAVANCIN [Suspect]
     Active Substance: TELAVANCIN
     Indication: Staphylococcal bacteraemia
  8. CEFTAROLINE [Concomitant]
     Active Substance: CEFTAROLINE
     Indication: Pneumonia staphylococcal
     Dosage: UNK
     Route: 065
  9. CEFTAROLINE [Concomitant]
     Active Substance: CEFTAROLINE
     Indication: Staphylococcal bacteraemia

REACTIONS (6)
  - Pneumonia staphylococcal [Unknown]
  - Staphylococcal bacteraemia [Unknown]
  - Off label use [Unknown]
  - Eosinophilic pneumonia [Unknown]
  - Osteomyelitis [Unknown]
  - Drug ineffective [Unknown]
